FAERS Safety Report 5781152-8 (Version None)
Quarter: 2008Q2

REPORT INFORMATION
  Report Type: 
  Country: None (occurrence: None)
  Receive Date: 20080618
  Receipt Date: 20080609
  Transmission Date: 20081010
  Serious: Yes (Hospitalization)
  Sender: FDA-Public Use
  Company Number: GXKR2008LB05272

PATIENT
  Age: 20 Year
  Sex: Male

DRUGS (3)
  1. METOPROLOL (NGX) (METOPROLOL) [Suspect]
     Indication: ATRIAL FIBRILLATION
     Dosage: 15 MG OVER 15 MIN, INTRAVENOUS
     Route: 042
  2. DILTIAZEM [Suspect]
     Indication: ATRIAL FIBRILLATION
     Dosage: 25 MG, INTRAVENOUS; 5 MG/H CONT, INTRAVENOUS
     Route: 042
  3. ALBUTEROL [Concomitant]

REACTIONS (2)
  - VENTRICULAR FIBRILLATION [None]
  - WOLFF-PARKINSON-WHITE SYNDROME [None]
